FAERS Safety Report 10596355 (Version 3)
Quarter: 2015Q2

REPORT INFORMATION
  Report Type: Spontaneous
  Country: US (occurrence: US)
  Receive Date: 20141120
  Receipt Date: 20150409
  Transmission Date: 20150821
  Serious: Yes (Life-Threatening, Hospitalization)
  Sender: FDA-Public Use
  Company Number: US-BAYER-2014-170287

PATIENT
  Age: 29 Year
  Sex: Female
  Weight: 63.49 kg

DRUGS (7)
  1. MIRENA [Suspect]
     Active Substance: LEVONORGESTREL
     Indication: CONTRACEPTION
     Dosage: 20 MCG/24HR, CONT
     Route: 015
     Dates: start: 20070703, end: 20080606
  2. MOTRIN [Concomitant]
     Active Substance: IBUPROFEN
  3. TYLENOL [Concomitant]
     Active Substance: ACETAMINOPHEN
  4. LEXAPRO [Concomitant]
     Active Substance: ESCITALOPRAM OXALATE
     Indication: DEPRESSION
  5. CLINDAMYCIN [Concomitant]
     Active Substance: CLINDAMYCIN\CLINDAMYCIN PHOSPHATE
  6. MIRENA [Suspect]
     Active Substance: LEVONORGESTREL
     Indication: MENORRHAGIA
  7. VANCOMYCIN [Concomitant]
     Active Substance: VANCOMYCIN

REACTIONS (14)
  - Depression [None]
  - Cyst [None]
  - Uterine perforation [None]
  - White blood cell count increased [None]
  - Cardiac disorder [None]
  - Anxiety [None]
  - Ovarian adhesion [None]
  - Back pain [None]
  - Pyrexia [None]
  - Injury [None]
  - Emotional distress [None]
  - Infection [None]
  - Sepsis [None]
  - Device breakage [None]

NARRATIVE: CASE EVENT DATE: 2008
